FAERS Safety Report 9395801 (Version 1)
Quarter: 2013Q3

REPORT INFORMATION
  Report Type: Spontaneous
  Country: DE (occurrence: None)
  Receive Date: 20130708
  Receipt Date: 20130708
  Transmission Date: 20140515
  Serious: Yes (Hospitalization)
  Sender: FDA-Public Use
  Company Number: 2013P1010992

PATIENT
  Sex: Female

DRUGS (1)
  1. CIPROFLOXACIN [Suspect]
     Indication: INFECTION PROPHYLAXIS
     Dosage: BID-TID
     Route: 042

REACTIONS (5)
  - Vessel puncture site erythema [None]
  - Vessel puncture site pain [None]
  - Vessel puncture site swelling [None]
  - Vessel puncture site thrombosis [None]
  - Infusion site mobility decreased [None]
